FAERS Safety Report 8152845-2 (Version None)
Quarter: 2012Q1

REPORT INFORMATION
  Report Type: 
  Country: None (occurrence: None)
  Receive Date: 20120221
  Receipt Date: 20120207
  Transmission Date: 20120608
  Serious: Yes (Hospitalization, Other)
  Sender: FDA-Public Use
  Company Number: US-UCBSA-051099

PATIENT
  Age: 68 Year

DRUGS (1)
  1. CIMZIA [Suspect]
     Indication: CROHN'S DISEASE
     Route: 058
     Dates: start: 20081106

REACTIONS (6)
  - DYSPNOEA [None]
  - GASTROINTESTINAL INFECTION [None]
  - AORTIC VALVE SCLEROSIS [None]
  - HYPOAESTHESIA [None]
  - FEELING ABNORMAL [None]
  - PARAESTHESIA [None]
